FAERS Safety Report 13349896 (Version 1)
Quarter: 2017Q1

REPORT INFORMATION
  Report Type: Spontaneous
  Country: GB (occurrence: GB)
  Receive Date: 20170320
  Receipt Date: 20170320
  Transmission Date: 20170429
  Serious: Yes (Hospitalization)
  Sender: FDA-Public Use
  Company Number: GB-009507513-1703GBR007622

PATIENT
  Age: 71 Year
  Sex: Male

DRUGS (26)
  1. DARATUMUMAB [Suspect]
     Active Substance: DARATUMUMAB
     Dosage: 1440 MG, UNK
     Dates: start: 20160119
  2. REVLIMID [Suspect]
     Active Substance: LENALIDOMIDE
     Indication: PLASMA CELL MYELOMA
     Dosage: AT CYCLE 1 PERIOD 1 AND AT CYCLE 2 PERIOD 1 WAS INITIATED ON 19 JAN 2016 AND CYCLE 3 PERIOD 1 WAS IN
     Route: 048
     Dates: start: 20151215
  3. CHOLESTYRAMINE RESIN [Concomitant]
     Active Substance: CHOLESTYRAMINE
     Indication: DIARRHOEA
     Dosage: UNK
     Route: 065
     Dates: start: 20170118
  4. PHOSPHATE POLYFUSOR [Concomitant]
     Indication: HYPOPHOSPHATAEMIA
     Dosage: UNK
     Route: 065
     Dates: start: 20161019
  5. ALBUTEROL. [Concomitant]
     Active Substance: ALBUTEROL
     Indication: CHEST DISCOMFORT
     Dosage: UNK
     Route: 065
     Dates: start: 20161129
  6. SODIUM PHOSPHATE, DIBASIC [Concomitant]
     Active Substance: SODIUM PHOSPHATE, DIBASIC
     Dosage: 2 DOSAGE FORMS,1 IN 1 D
     Route: 048
     Dates: start: 20160104, end: 20160106
  7. HYDROCORTISONE. [Concomitant]
     Active Substance: HYDROCORTISONE
     Indication: CHEST DISCOMFORT
     Route: 065
  8. HYDROCORTISONE. [Concomitant]
     Active Substance: HYDROCORTISONE
     Indication: COUGH
     Dosage: UNK
     Route: 065
  9. DEXAMETHASONE. [Suspect]
     Active Substance: DEXAMETHASONE
     Dosage: 15 DEC 2015 CYCLE 1 DAY 1, C1D8 ON 22 DEC 2015, C1D15 ON 30 DEC 2015 AND C1D22 ON 07 JAN 2016. AT CY
     Route: 041
     Dates: start: 20151215
  10. CHLORPHENAMINE [Concomitant]
     Active Substance: CHLORPHENIRAMINE MALEATE
     Indication: COUGH
     Dosage: UNK
     Route: 065
  11. SODIUM PHOSPHATE, DIBASIC [Concomitant]
     Active Substance: SODIUM PHOSPHATE, DIBASIC
     Indication: DIARRHOEA
     Dosage: UNK
     Route: 048
     Dates: start: 20161215
  12. ZOLEDRONIC ACID [Concomitant]
     Active Substance: ZOLEDRONIC ACID
     Indication: PROPHYLAXIS
     Dosage: 4 MG,1 IN 1 M
     Route: 041
     Dates: start: 20161026
  13. CLARITHROMYCIN. [Concomitant]
     Active Substance: CLARITHROMYCIN
     Indication: LOWER RESPIRATORY TRACT INFECTION
     Dosage: 500 MG, UNK
     Route: 048
     Dates: start: 20160104
  14. CLARITHROMYCIN. [Concomitant]
     Active Substance: CLARITHROMYCIN
     Dosage: 500 MG, UNK
     Route: 048
     Dates: start: 20160101
  15. FLOXACILLIN [Concomitant]
     Active Substance: FLUCLOXACILLIN
     Indication: RASH
     Dosage: UNK
     Route: 065
     Dates: start: 20160824
  16. ALBUTEROL. [Concomitant]
     Active Substance: ALBUTEROL
     Indication: COUGH
     Dosage: UNK
     Route: 065
  17. AMOXICILLIN. [Concomitant]
     Active Substance: AMOXICILLIN
     Indication: COUGH
     Dosage: UNK
     Route: 065
     Dates: start: 20161206
  18. DOXYCYCLINE. [Concomitant]
     Active Substance: DOXYCYCLINE
  19. CHLORPHENAMINE [Concomitant]
     Active Substance: CHLORPHENIRAMINE MALEATE
     Indication: CHEST DISCOMFORT
     Dosage: UNK
     Route: 065
  20. AMOXICILLIN TRIHYDRATE [Concomitant]
     Active Substance: AMOXICILLIN
     Dosage: UNKNOWN, 3 IN 1 D
     Route: 048
     Dates: start: 20160101
  21. DOXYCYCLINE. [Suspect]
     Active Substance: DOXYCYCLINE
     Dosage: UNK
     Route: 065
     Dates: start: 20161206
  22. ACYCLOVIR. [Concomitant]
     Active Substance: ACYCLOVIR
     Indication: INFECTION PROPHYLAXIS
     Route: 048
  23. CHOLESTYRAMINE RESIN [Concomitant]
     Active Substance: CHOLESTYRAMINE
     Indication: COUGH
     Dosage: UNK
     Route: 065
  24. SODIUM PHOSPHATE, DIBASIC [Concomitant]
     Active Substance: SODIUM PHOSPHATE, DIBASIC
     Indication: BLOOD PHOSPHORUS
     Dosage: UNK
     Route: 048
     Dates: start: 20161117
  25. AMOXICILLIN TRIHYDRATE [Concomitant]
     Active Substance: AMOXICILLIN
     Indication: LOWER RESPIRATORY TRACT INFECTION
     Dosage: UNKNOWN, 3 IN 1 D
     Route: 048
     Dates: start: 20160104
  26. DARATUMUMAB [Suspect]
     Active Substance: DARATUMUMAB
     Indication: PLASMA CELL MYELOMA
     Dosage: 15 DEC 2015 CYCLE 1 DAY 1, C1D8 ON 22 DEC 2015 C1D15 ON 30 DEC 2015. AT CYCLE 2 DAY 22 (C2D22) ON 09
     Route: 041
     Dates: start: 20151215, end: 20151230

REACTIONS (6)
  - Mood swings [Unknown]
  - Dizziness [Unknown]
  - Dyspnoea [Unknown]
  - Febrile neutropenia [Recovered/Resolved]
  - Contusion [Unknown]
  - Abdominal pain [Recovered/Resolved]

NARRATIVE: CASE EVENT DATE: 20151218
